FAERS Safety Report 4578051-6 (Version None)
Quarter: 2005Q1

REPORT INFORMATION
  Report Type: 
  Country: None (occurrence: None)
  Receive Date: 20050201
  Receipt Date: 20050201
  Transmission Date: 20050727
  Serious: Yes (Death)
  Sender: FDA-Public Use
  Company Number: None

PATIENT
  Sex: Female
  Weight: 76.4 kg

DRUGS (1)
  1. DOCETAXEL  AVENTIX [Suspect]
     Indication: ENDOMETRIAL CANCER
     Dosage: 31 MG/M2 DAY 1, 8, 15 INTRAVENOUS
     Route: 042
     Dates: start: 20041116, end: 20041230

REACTIONS (3)
  - INTESTINAL OBSTRUCTION [None]
  - MALIGNANT NEOPLASM PROGRESSION [None]
  - PERITONEAL CARCINOMA [None]
